FAERS Safety Report 13759473 (Version 1)
Quarter: 2017Q3

REPORT INFORMATION
  Report Type: Spontaneous
  Country: US (occurrence: US)
  Receive Date: 20170717
  Receipt Date: 20170717
  Transmission Date: 20171127
  Serious: No
  Sender: FDA-Public Use
  Company Number: US-IPSEN BIOPHARMACEUTICALS, INC.-2012-0011

PATIENT
  Age: 67 Year
  Sex: Female

DRUGS (1)
  1. DYSPORT [Suspect]
     Active Substance: ABOBOTULINUMTOXINA
     Indication: SKIN WRINKLING
     Dosage: 50 UNITS
     Route: 058
     Dates: start: 20111227, end: 20111227

REACTIONS (2)
  - Product preparation error [Unknown]
  - Injection site pain [None]

NARRATIVE: CASE EVENT DATE: 20111227
